FAERS Safety Report 5071252-2 (Version None)
Quarter: 2006Q3

REPORT INFORMATION
  Report Type: 
  Country: None (occurrence: None)
  Receive Date: 20060804
  Receipt Date: 20060725
  Transmission Date: 20061208
  Serious: No
  Sender: FDA-Public Use
  Company Number: SA-JNJFOC-20060703003

PATIENT
  Age: 31 Year
  Sex: Male

DRUGS (4)
  1. REMICADE [Suspect]
     Indication: UVEITIS
     Route: 042
  2. REMICADE [Suspect]
     Indication: SACROILIITIS
     Route: 042
  3. REMICADE [Suspect]
     Indication: ANKYLOSING SPONDYLITIS
     Route: 042
  4. INDOMETHACIN [Concomitant]
     Indication: ANKYLOSING SPONDYLITIS

REACTIONS (1)
  - POLYARTHRITIS [None]
